FAERS Safety Report 18336207 (Version 1)
Quarter: 2020Q4

REPORT INFORMATION
  Report Type: Spontaneous
  Country: US (occurrence: US)
  Receive Date: 20201001
  Receipt Date: 20201001
  Transmission Date: 20210113
  Serious: Yes (Other)
  Sender: FDA-Public Use
  Company Number: US-PFIZER INC-2019372280

PATIENT
  Age: 75 Year
  Sex: Male

DRUGS (1)
  1. LYRICA [Suspect]
     Active Substance: PREGABALIN
     Indication: TYPE 2 DIABETES MELLITUS
     Dosage: 100 MG, 1X/DAY (1 CAPSULE BY MOUTH NIGHTLY)
     Route: 048

REACTIONS (4)
  - Nerve injury [Unknown]
  - Off label use [Unknown]
  - Carpal tunnel syndrome [Unknown]
  - Product use in unapproved indication [Unknown]
